FAERS Safety Report 21173462 (Version 1)
Quarter: 2022Q3

REPORT INFORMATION
  Report Type: Spontaneous
  Country: US (occurrence: None)
  Receive Date: 20220804
  Receipt Date: 20220804
  Transmission Date: 20221027
  Serious: Yes (Hospitalization)
  Sender: FDA-Public Use
  Company Number: None

PATIENT
  Age: 60 Year
  Sex: Female
  Weight: 68.4 kg

DRUGS (1)
  1. OZEMPIC [Suspect]
     Active Substance: SEMAGLUTIDE
     Indication: Type 2 diabetes mellitus
     Dosage: OTHER FREQUENCY : ONCE/WEEK;?OTHER ROUTE : INJECTION SQ;?
     Route: 050
     Dates: start: 20211111, end: 20220616

REACTIONS (2)
  - Constipation [None]
  - Colitis ischaemic [None]

NARRATIVE: CASE EVENT DATE: 20220615
